FAERS Safety Report 8022014-5 (Version None)
Quarter: 2012Q1

REPORT INFORMATION
  Report Type: 
  Country: None (occurrence: None)
  Receive Date: 20120104
  Receipt Date: 20111220
  Transmission Date: 20120608
  Serious: Yes (Hospitalization)
  Sender: FDA-Public Use
  Company Number: NL-CELGENEUS-114-50794-11122448

PATIENT
  Sex: Male
  Weight: 86 kg

DRUGS (2)
  1. VIDAZA [Suspect]
     Dosage: 100 MILLIGRAM
     Route: 058
     Dates: start: 20110627
  2. VORICONAZOLE [Suspect]
     Dosage: 350 MILLIGRAM
     Route: 048
     Dates: start: 20110701

REACTIONS (1)
  - GAMMA-GLUTAMYLTRANSFERASE INCREASED [None]
